FAERS Safety Report 8066488-2 (Version None)
Quarter: 2012Q1

REPORT INFORMATION
  Report Type: 
  Country: None (occurrence: None)
  Receive Date: 20120124
  Receipt Date: 20120118
  Transmission Date: 20120608
  Serious: Yes (Other)
  Sender: FDA-Public Use
  Company Number: US-PFIZER INC-2012015387

PATIENT
  Sex: Female
  Weight: 100 kg

DRUGS (3)
  1. PREMPRO [Suspect]
     Indication: HORMONE REPLACEMENT THERAPY
     Dosage: UNK
     Route: 048
     Dates: start: 19960101, end: 20020107
  2. ATENOLOL [Concomitant]
     Indication: HEART RATE IRREGULAR
     Dosage: 50 MG, EACH MORNING
  3. ALLEGRA-D 12 HOUR [Concomitant]
     Indication: HYPERSENSITIVITY
     Dosage: AS NEEDED

REACTIONS (1)
  - BREAST CANCER FEMALE [None]
